FAERS Safety Report 23526197 (Version 1)
Quarter: 2024Q1

REPORT INFORMATION
  Report Type: Spontaneous
  Country: US (occurrence: US)
  Receive Date: 20240215
  Receipt Date: 20240215
  Transmission Date: 20240409
  Serious: Yes (Disabling, Other)
  Sender: FDA-Public Use
  Company Number: US-SEATTLE GENETICS-2024SGN01413

PATIENT
  Age: 40 Year
  Sex: Female

DRUGS (1)
  1. TIVDAK [Suspect]
     Active Substance: TISOTUMAB VEDOTIN-TFTV
     Indication: Product used for unknown indication
     Dosage: 1.3 MG/KG
     Route: 065
     Dates: end: 202401

REACTIONS (2)
  - Peripheral motor neuropathy [Not Recovered/Not Resolved]
  - Wheelchair user [Unknown]
